FAERS Safety Report 8265000 (Version 2)
Quarter: 2013Q2

REPORT INFORMATION
  Report Type: Report from Study
  Country: AU (occurrence: AU)
  Receive Date: 20111128
  Receipt Date: 20130426
  Transmission Date: 20140414
  Serious: Yes (Hospitalization, Disabling)
  Sender: FDA-Public Use
  Company Number: AU-CELGENEUS-008-50794-11091882

PATIENT
  Age: 58 Year
  Sex: Male
  Weight: 84.5 kg

DRUGS (2)
  1. VIDAZA [Suspect]
     Indication: MYELODYSPLASTIC SYNDROME
     Route: 065
     Dates: start: 20110808, end: 20110816
  2. VIDAZA [Suspect]
     Route: 065
     Dates: start: 20110905, end: 20110913

REACTIONS (3)
  - Neutropenia [Recovered/Resolved]
  - Lymphangitis [Recovering/Resolving]
  - Injection site pain [Unknown]
